FAERS Safety Report 11144620 (Version 1)
Quarter: 2015Q2

REPORT INFORMATION
  Report Type: Spontaneous
  Country: US (occurrence: US)
  Receive Date: 20150528
  Receipt Date: 20150528
  Transmission Date: 20150821
  Serious: Yes (Other)
  Sender: FDA-Public Use
  Company Number: US-PFIZER INC-2015175067

PATIENT
  Sex: Female

DRUGS (1)
  1. LYRICA [Suspect]
     Active Substance: PREGABALIN
     Dosage: UNK

REACTIONS (7)
  - Chronic fatigue syndrome [Unknown]
  - Malaise [Unknown]
  - Rheumatoid arthritis [Unknown]
  - Diabetes mellitus [Unknown]
  - Blood pressure abnormal [Unknown]
  - Stomach mass [Unknown]
  - Blood cholesterol abnormal [Unknown]
